FAERS Safety Report 9253680 (Version 3)
Quarter: 2013Q4

REPORT INFORMATION
  Report Type: Spontaneous
  Country: US (occurrence: US)
  Receive Date: 20130425
  Receipt Date: 20131122
  Transmission Date: 20140711
  Serious: Yes (Hospitalization, Disabling, Other)
  Sender: FDA-Public Use
  Company Number: US-ASTRAZENECA-2013SE27471

PATIENT
  Age: 64 Year
  Sex: Female
  Weight: 81.6 kg

DRUGS (12)
  1. NEXIUM [Suspect]
     Indication: DYSPEPSIA
     Route: 048
     Dates: start: 20030128, end: 20061127
  2. NEXIUM [Suspect]
     Indication: GASTROOESOPHAGEAL REFLUX DISEASE
     Route: 048
     Dates: start: 20030128, end: 20061127
  3. NEXIUM [Suspect]
     Indication: DYSPEPSIA
     Route: 048
     Dates: start: 20030128
  4. NEXIUM [Suspect]
     Indication: GASTROOESOPHAGEAL REFLUX DISEASE
     Route: 048
     Dates: start: 20030128
  5. NEXIUM [Suspect]
     Indication: DYSPEPSIA
     Route: 048
     Dates: end: 2009
  6. NEXIUM [Suspect]
     Indication: GASTROOESOPHAGEAL REFLUX DISEASE
     Route: 048
     Dates: end: 2009
  7. TUMS [Concomitant]
  8. ROLAIDS [Concomitant]
  9. ENALAPRIL [Concomitant]
     Indication: BLOOD PRESSURE
  10. PRAVASTATIN [Concomitant]
     Indication: BLOOD CHOLESTEROL
  11. VITAMIN D [Concomitant]
  12. VITAMIN B3 [Concomitant]

REACTIONS (13)
  - Spinal cord injury [Unknown]
  - Dysstasia [Unknown]
  - Weight increased [Unknown]
  - Back injury [Unknown]
  - Upper limb fracture [Unknown]
  - Compression fracture [Unknown]
  - Fall [Unknown]
  - Osteoporosis [Unknown]
  - Bone disorder [Unknown]
  - Multiple fractures [Unknown]
  - Angina pectoris [Unknown]
  - Vitamin D deficiency [Unknown]
  - Emotional distress [Unknown]
